FAERS Safety Report 9697255 (Version 2)
Quarter: 2013Q4

REPORT INFORMATION
  Report Type: Spontaneous
  Country: FR (occurrence: FR)
  Receive Date: 20131120
  Receipt Date: 20131129
  Transmission Date: 20140711
  Serious: Yes (Death)
  Sender: FDA-Public Use
  Company Number: FR-BRISTOL-MYERS SQUIBB COMPANY-19789205

PATIENT
  Age: 67 Year
  Sex: Male
  Weight: 95 kg

DRUGS (10)
  1. HYDREA CAPS 500 MG [Suspect]
     Indication: CHRONIC MYELOMONOCYTIC LEUKAEMIA
     Dosage: 2/1DAY:03-JUL-2013 TO 10-JUL-2013 ?1/DAY:11JUL13 TO 24OCT2013
     Route: 048
     Dates: start: 20130703
  2. AZACITIDINE [Suspect]
     Indication: CHRONIC MYELOMONOCYTIC LEUKAEMIA
     Dosage: 28DAY COURSE:76.12 MG PER COURSE ?OVER 6 DAYS. 2H558A,2H588A?1ST:31JL13?2ND:4SE13?3RD:16-21OC13
     Route: 058
     Dates: start: 20130731
  3. METFORMIN [Suspect]
  4. TEMERIT [Concomitant]
  5. KENZEN [Concomitant]
  6. ADANCOR [Concomitant]
  7. PERMIXON [Concomitant]
  8. IXPRIM [Concomitant]
     Dosage: TRAMADOL 37.5 MG, PARACETAMOL 325 MG
  9. DAFALGAN [Concomitant]
  10. ALLOPURINOL [Concomitant]

REACTIONS (3)
  - Necrotising fasciitis [Fatal]
  - Septic shock [Fatal]
  - Lactic acidosis [Fatal]
